FAERS Safety Report 15941973 (Version 2)
Quarter: 2020Q2

REPORT INFORMATION
  Report Type: Spontaneous
  Country: US (occurrence: US)
  Receive Date: 20190209
  Receipt Date: 20200604
  Transmission Date: 20200713
  Serious: No
  Sender: FDA-Public Use
  Company Number: US-TAKEDA-2019TUS004895

PATIENT
  Sex: Female
  Weight: 90.7 kg

DRUGS (6)
  1. NORVASC [Concomitant]
     Active Substance: AMLODIPINE BESYLATE
     Indication: HYPERTENSION
     Dosage: 5 MILLIGRAM, QD
     Route: 048
  2. DEXILANT [Suspect]
     Active Substance: DEXLANSOPRAZOLE
     Indication: GASTROOESOPHAGEAL REFLUX DISEASE
     Dosage: 60 MILLIGRAM, QD
     Route: 048
  3. TOPROL XL [Concomitant]
     Active Substance: METOPROLOL SUCCINATE
     Indication: HYPERTENSION
     Dosage: 50 MILLIGRAM, QD
     Route: 048
  4. LIPITOR [Concomitant]
     Active Substance: ATORVASTATIN CALCIUM
     Indication: BLOOD CHOLESTEROL INCREASED
     Dosage: 20 MILLIGRAM, QD
     Route: 048
  5. LIPITOR [Concomitant]
     Active Substance: ATORVASTATIN CALCIUM
     Indication: BLOOD CHOLESTEROL
  6. DEXILANT [Suspect]
     Active Substance: DEXLANSOPRAZOLE
     Indication: BARRETT^S OESOPHAGUS
     Dosage: 60 MILLIGRAM, QD
     Route: 065

REACTIONS (7)
  - Hypersensitivity [Unknown]
  - Paraesthesia oral [Unknown]
  - Therapeutic response shortened [Unknown]
  - Incorrect product administration duration [Unknown]
  - Nasal congestion [Recovering/Resolving]
  - Upper respiratory tract congestion [Recovering/Resolving]
  - Dysphonia [Recovering/Resolving]
